FAERS Safety Report 9321487 (Version 1)
Quarter: 2013Q2

REPORT INFORMATION
  Report Type: Spontaneous
  Country: US (occurrence: US)
  Receive Date: 20130531
  Receipt Date: 20130531
  Transmission Date: 20140414
  Serious: Yes (Death, Other)
  Sender: FDA-Public Use
  Company Number: PHHY2012US058154

PATIENT
  Sex: Female

DRUGS (4)
  1. AZATHIOPRINE [Suspect]
     Indication: LIVER TRANSPLANT
     Dosage: UNK UKN, UNK
  2. TACROLIMUS [Suspect]
  3. PREDNISONE [Suspect]
     Indication: TRANSPLANT REJECTION
  4. SIROLIMUS [Suspect]
     Indication: TRANSPLANT REJECTION

REACTIONS (12)
  - Death [Fatal]
  - Cholestasis [Unknown]
  - Jaundice [Unknown]
  - Liver transplant rejection [Unknown]
  - Chronic hepatitis [Unknown]
  - Blood bilirubin increased [Unknown]
  - Aspartate aminotransferase increased [Unknown]
  - Alanine aminotransferase increased [Unknown]
  - Cerebral aspergillosis [Unknown]
  - Hemiparesis [Unknown]
  - Premature labour [Unknown]
  - Exposure during pregnancy [Unknown]
